FAERS Safety Report 24196367 (Version 1)
Quarter: 2024Q3

REPORT INFORMATION
  Report Type: Spontaneous
  Country: FR (occurrence: FR)
  Receive Date: 20240809
  Receipt Date: 20240809
  Transmission Date: 20241016
  Serious: Yes (Hospitalization)
  Sender: ROCHE
  Company Number: None

PATIENT
  Age: 80 Year
  Sex: Male
  Weight: 81 kg

DRUGS (2)
  1. AVASTIN [Suspect]
     Active Substance: BEVACIZUMAB
     Indication: Lung adenocarcinoma
     Route: 042
     Dates: start: 20240613, end: 20240613
  2. PACLITAXEL [Concomitant]
     Active Substance: PACLITAXEL
     Indication: Lung adenocarcinoma
     Dosage: J1/J8/J15
     Route: 042
     Dates: start: 20240613, end: 20240613

REACTIONS (1)
  - Injection site extravasation [Recovering/Resolving]

NARRATIVE: CASE EVENT DATE: 20240613
